FAERS Safety Report 6728086-X (Version None)
Quarter: 2010Q2

REPORT INFORMATION
  Report Type: 
  Country: None (occurrence: None)
  Receive Date: 20100517
  Receipt Date: 20100506
  Transmission Date: 20101027
  Serious: Yes (Hospitalization)
  Sender: FDA-Public Use
  Company Number: GXKR2010US05095

PATIENT
  Age: 49 Year
  Sex: Female

DRUGS (2)
  1. AZITHROMYCIN (NGX) [Suspect]
     Indication: BRONCHITIS
     Route: 065
  2. RED YEAST RICE [Interacting]
     Dosage: 600 MG, BID
     Route: 065

REACTIONS (5)
  - CHROMATURIA [None]
  - DRUG INTERACTION [None]
  - MYALGIA [None]
  - PAIN [None]
  - RHABDOMYOLYSIS [None]
